FAERS Safety Report 22334400 (Version 2)
Quarter: 2023Q2

REPORT INFORMATION
  Report Type: Report from Study
  Country: US (occurrence: US)
  Receive Date: 20230517
  Receipt Date: 20230626
  Transmission Date: 20230721
  Serious: Yes (Hospitalization, Other)
  Sender: FDA-Public Use
  Company Number: US-BIOGEN-2023BI01205802

PATIENT
  Sex: Female

DRUGS (4)
  1. TYSABRI [Suspect]
     Active Substance: NATALIZUMAB
     Indication: Multiple sclerosis
     Route: 050
     Dates: start: 20140723, end: 20141231
  2. TYSABRI [Suspect]
     Active Substance: NATALIZUMAB
     Route: 050
     Dates: start: 20150603, end: 20170809
  3. TYSABRI [Suspect]
     Active Substance: NATALIZUMAB
     Dosage: 1 EVERY 6 TO 8 WEEKS
     Route: 050
  4. TYSABRI [Suspect]
     Active Substance: NATALIZUMAB
     Route: 050
     Dates: start: 20181106

REACTIONS (4)
  - Multiple sclerosis relapse [Unknown]
  - Seizure [Unknown]
  - Gait inability [Unknown]
  - Musculoskeletal disorder [Unknown]
